FAERS Safety Report 22398522 (Version 1)
Quarter: 2023Q2

REPORT INFORMATION
  Report Type: Spontaneous
  Country: NZ (occurrence: NZ)
  Receive Date: 20230602
  Receipt Date: 20230602
  Transmission Date: 20230721
  Serious: Yes (Other)
  Sender: FDA-Public Use
  Company Number: NZ-PFIZER INC-2010142566

PATIENT
  Age: 85 Year
  Sex: Male

DRUGS (1)
  1. CIPROFLOXACIN HYDROCHLORIDE [Suspect]
     Active Substance: CIPROFLOXACIN HYDROCHLORIDE
     Indication: Arthritis infective
     Dosage: 500 MG, TWICE DAILY
     Route: 048

REACTIONS (2)
  - Delirium [Recovered/Resolved]
  - Myoclonus [Recovered/Resolved]
